FAERS Safety Report 9029971 (Version 2)
Quarter: 2013Q1

REPORT INFORMATION
  Report Type: Spontaneous
  Country: FR (occurrence: FR)
  Receive Date: 20130125
  Receipt Date: 20130220
  Transmission Date: 20140127
  Serious: Yes (Hospitalization)
  Sender: FDA-Public Use
  Company Number: FR-BIOGENIDEC-2013BI006567

PATIENT
  Age: 37 Year
  Sex: Female
  Weight: 87 kg

DRUGS (3)
  1. AVONEX [Suspect]
     Indication: MULTIPLE SCLEROSIS
     Route: 030
     Dates: start: 201104, end: 20121102
  2. SEROPLEX [Concomitant]
     Indication: ANXIETY
  3. LEXOMIL [Concomitant]
     Indication: ANXIETY

REACTIONS (1)
  - Delirium [Recovered/Resolved]
